FAERS Safety Report 10063495 (Version 1)
Quarter: 2014Q2

REPORT INFORMATION
  Report Type: Spontaneous
  Country: US (occurrence: None)
  Receive Date: 20140402
  Receipt Date: 20140402
  Transmission Date: 20141212
  Serious: Yes (Life-Threatening, Hospitalization)
  Sender: FDA-Public Use
  Company Number: 2013STPI000382

PATIENT
  Age: 6 Year
  Sex: Female
  Weight: 22.8 kg

DRUGS (2)
  1. ONCASPAR INJECTION (PEGASPARGASE) INJECTION, 3750/5IU/ML [Suspect]
     Indication: ACUTE LYMPHOCYTIC LEUKAEMIA
     Route: 042
     Dates: start: 20130719, end: 20130719
  2. VINCRISTINE SULFATE (VINCRISTINE SULFATE) [Concomitant]

REACTIONS (1)
  - Hypersensitivity [None]
